FAERS Safety Report 5241722-2 (Version None)
Quarter: 2007Q1

REPORT INFORMATION
  Report Type: 
  Country: None (occurrence: None)
  Receive Date: 20070220
  Receipt Date: 20070212
  Transmission Date: 20070707
  Serious: Yes (Hospitalization)
  Sender: FDA-Public Use
  Company Number: GB-ELI_LILLY_AND_COMPANY-GB200701003303

PATIENT
  Age: 68 Year
  Sex: Female

DRUGS (15)
  1. FORTEO [Suspect]
     Indication: OSTEOPOROSIS
     Dosage: 20 UG, UNK
     Route: 058
     Dates: start: 20050801
  2. OMEPRAZOLE [Concomitant]
     Dosage: 20 MG, UNK
  3. CO-AMILOFRUSE [Concomitant]
     Dosage: 2 D/F, EACH MORNING
     Dates: start: 20070109, end: 20070204
  4. CO-AMILOFRUSE [Concomitant]
     Dosage: 1 D/F, EACH MORNING
     Dates: start: 20070205
  5. ADCAL-D3 [Concomitant]
     Dosage: 1 D/F, 2/D
     Route: 048
  6. ATENOLOL [Concomitant]
     Dosage: 100 MG, UNK
     Route: 048
     Dates: end: 20070205
  7. CO-DYDRAMOL [Concomitant]
  8. OLANZAPINE [Concomitant]
     Indication: DEPRESSION
     Dosage: 7.5 MG, DAILY (1/D)
     Route: 048
  9. VENLAFAXINE HCL [Concomitant]
     Indication: DEPRESSION
     Dosage: 375 MG, UNK
     Route: 048
     Dates: end: 20070118
  10. VENLAFAXINE HCL [Concomitant]
     Dosage: 300 MG, UNK
     Route: 048
     Dates: start: 20070119
  11. ARTHROTEC [Concomitant]
     Dosage: 1 D/F, 3/D
     Dates: start: 20070109, end: 20070101
  12. PARACETAMOL [Concomitant]
     Dosage: 1 G, 4/D
  13. LORAZEPAM [Concomitant]
     Dosage: 500 MG, 3/D
     Dates: start: 20070109, end: 20070130
  14. NYSTATIN [Concomitant]
     Dosage: 1 ML, 4/D
     Dates: start: 20070120
  15. METOPROLOL SUCCINATE [Concomitant]
     Dosage: 25 MG, UNK
     Dates: start: 20070205

REACTIONS (5)
  - DEPRESSION POSTOPERATIVE [None]
  - FALL [None]
  - HAEMATEMESIS [None]
  - HIP FRACTURE [None]
  - ORTHOSTATIC HYPOTENSION [None]
